FAERS Safety Report 25757559 (Version 1)
Quarter: 2025Q3

REPORT INFORMATION
  Report Type: Spontaneous
  Country: US (occurrence: US)
  Receive Date: 20250903
  Receipt Date: 20250903
  Transmission Date: 20251020
  Serious: No
  Sender: ELI LILLY AND COMPANY
  Company Number: US-ELI_LILLY_AND_COMPANY-US202509000410

PATIENT
  Age: 46 Year
  Sex: Male

DRUGS (1)
  1. BASAGLAR [Suspect]
     Active Substance: INSULIN GLARGINE
     Indication: Product used for unknown indication
     Route: 065

REACTIONS (6)
  - Blood glucose fluctuation [Recovered/Resolved]
  - Blood glucose increased [Recovered/Resolved]
  - Hyperhidrosis [Recovered/Resolved]
  - Pollakiuria [Recovered/Resolved]
  - Renal disorder [Recovered/Resolved]
  - Blood glucose decreased [Recovered/Resolved]

NARRATIVE: CASE EVENT DATE: 20250731
